FAERS Safety Report 14241429 (Version 2)
Quarter: 2018Q1

REPORT INFORMATION
  Report Type: Report from Study
  Country: None (occurrence: US)
  Receive Date: 20171201
  Receipt Date: 20180316
  Transmission Date: 20180508
  Serious: Yes (Other)
  Sender: FDA-Public Use
  Company Number: US-ABBVIE-17K-163-1996386-00

PATIENT
  Age: 65 Year
  Sex: Male

DRUGS (4)
  1. HUMIRA [Suspect]
     Active Substance: ADALIMUMAB
     Indication: CROHN^S DISEASE
     Dosage: DAY 1
     Route: 058
     Dates: start: 20170420, end: 20170420
  2. HUMIRA [Suspect]
     Active Substance: ADALIMUMAB
     Dosage: DAY 15
     Route: 058
     Dates: start: 20170504, end: 20170504
  3. AZATHIOPRINE. [Suspect]
     Active Substance: AZATHIOPRINE
     Indication: KIDNEY TRANSPLANT REJECTION
     Route: 065
  4. HUMIRA [Suspect]
     Active Substance: ADALIMUMAB
     Dosage: DAY 29
     Route: 058
     Dates: start: 20170518

REACTIONS (12)
  - Constipation [Unknown]
  - Increased appetite [Unknown]
  - Weight increased [Unknown]
  - Peripheral swelling [Recovered/Resolved]
  - Injection site urticaria [Unknown]
  - Condition aggravated [Recovering/Resolving]
  - Conjunctivitis [Unknown]
  - Diarrhoea [Recovering/Resolving]
  - Chronic kidney disease [Not Recovered/Not Resolved]
  - Hordeolum [Unknown]
  - Injection site reaction [Unknown]
  - Crohn^s disease [Recovered/Resolved]

NARRATIVE: CASE EVENT DATE: 2017
